FAERS Safety Report 21668523 (Version 1)
Quarter: 2022Q4

REPORT INFORMATION
  Report Type: Spontaneous
  Country: US (occurrence: US)
  Receive Date: 20221201
  Receipt Date: 20221201
  Transmission Date: 20230113
  Serious: No
  Sender: FDA-Public Use
  Company Number: US-SA-SAC20221128001176

PATIENT
  Sex: Female
  Weight: 63 kg

DRUGS (18)
  1. NEXVIAZYME [Suspect]
     Active Substance: AVALGLUCOSIDASE ALFA-NGPT
     Indication: Glycogen storage disease type II
     Dosage: 1400 MG, QOW
     Route: 042
     Dates: start: 20221005
  2. SODIUM CHLORIDE [Concomitant]
     Active Substance: SODIUM CHLORIDE
  3. DIPHENHYDRAMINE [Concomitant]
     Active Substance: DIPHENHYDRAMINE
  4. HEPARIN [Concomitant]
     Active Substance: HEPARIN SODIUM
  5. EPINEPHRINE [Concomitant]
     Active Substance: EPINEPHRINE
  6. FLUOXETINE HYDROCHLORIDE [Concomitant]
     Active Substance: FLUOXETINE HYDROCHLORIDE
  7. LIDOCAINE [Concomitant]
     Active Substance: LIDOCAINE
  8. PRILOCAINE [Concomitant]
     Active Substance: PRILOCAINE
  9. VITAMIN D3 [Concomitant]
     Active Substance: CHOLECALCIFEROL
  10. STERILE WATER [Concomitant]
     Active Substance: WATER
  11. ACETAMINOPHEN [Concomitant]
     Active Substance: ACETAMINOPHEN
  12. VITAMIN C [Concomitant]
     Active Substance: ASCORBIC ACID
  13. NAPROXEN [Concomitant]
     Active Substance: NAPROXEN
  14. CYPROHEPTADINE HYDROCHLORIDE [Concomitant]
     Active Substance: CYPROHEPTADINE HYDROCHLORIDE
  15. FERROUS SULFATE [Concomitant]
     Active Substance: FERROUS SULFATE
  16. MELATONIN [Concomitant]
     Active Substance: MELATONIN
  17. FISH OIL [Concomitant]
     Active Substance: FISH OIL
  18. DEXTROSE [Concomitant]
     Active Substance: DEXTROSE

REACTIONS (2)
  - Ear infection [Unknown]
  - Ear pain [Unknown]
